FAERS Safety Report 6942870-9 (Version None)
Quarter: 2010Q3

REPORT INFORMATION
  Report Type: 
  Country: None (occurrence: None)
  Receive Date: 20100826
  Receipt Date: 20100816
  Transmission Date: 20110219
  Serious: Yes (Other)
  Sender: FDA-Public Use
  Company Number: US-MYLANLABS-2010S1014952

PATIENT
  Age: 16 Year
  Sex: Female

DRUGS (4)
  1. AMNESTEEM [Suspect]
     Route: 048
     Dates: end: 20100520
  2. AMNESTEEM [Suspect]
     Route: 048
     Dates: end: 20100520
  3. SOTRET [Suspect]
     Route: 048
     Dates: start: 20091215
  4. SOTRET [Suspect]
     Route: 048
     Dates: start: 20091215

REACTIONS (1)
  - DRUG EXPOSURE BEFORE PREGNANCY [None]
